FAERS Safety Report 5601303-5 (Version None)
Quarter: 2008Q1

REPORT INFORMATION
  Report Type: 
  Country: None (occurrence: None)
  Receive Date: 20080124
  Receipt Date: 20080116
  Transmission Date: 20080703
  Serious: Yes (Other)
  Sender: FDA-Public Use
  Company Number: B0503574A

PATIENT
  Sex: Male

DRUGS (3)
  1. BECOTIDE [Suspect]
     Indication: DRUG USE FOR UNKNOWN INDICATION
     Dosage: 400MCG TWICE PER DAY
     Route: 055
  2. SALBUTAMOL INHALER [Concomitant]
  3. ANTIBIOTICS (NAME UNKNOWN) [Concomitant]

REACTIONS (2)
  - CHEST DISCOMFORT [None]
  - PHARYNGEAL OEDEMA [None]
